FAERS Safety Report 5698188-8 (Version None)
Quarter: 2008Q2

REPORT INFORMATION
  Report Type: 
  Country: None (occurrence: None)
  Receive Date: 20080403
  Receipt Date: 20080321
  Transmission Date: 20081010
  Serious: No
  Sender: FDA-Public Use
  Company Number: 000353

PATIENT
  Age: 29 Year
  Sex: Female

DRUGS (6)
  1. BUSULFEX [Suspect]
     Indication: STEM CELL TRANSPLANT
     Dosage: INTRAVENOUS
     Route: 042
     Dates: start: 20071011, end: 20071014
  2. CYCLOPHOSPHAMIDE [Concomitant]
  3. VALPROATE SODIUM [Concomitant]
  4. LENOGRATIM (LENOGRASTIM) [Concomitant]
  5. METHOTREXATE [Concomitant]
  6. CYCLOSPORINE [Concomitant]

REACTIONS (5)
  - BONE MARROW TRANSPLANT [None]
  - BRONCHOPULMONARY ASPERGILLOSIS [None]
  - SERRATIA SEPSIS [None]
  - STOMATITIS [None]
  - VENOOCCLUSIVE LIVER DISEASE [None]
